FAERS Safety Report 6496335-1 (Version None)
Quarter: 2009Q4

REPORT INFORMATION
  Report Type: 
  Country: None (occurrence: None)
  Receive Date: 20091214
  Receipt Date: 20091201
  Transmission Date: 20100525
  Serious: Yes (Hospitalization)
  Sender: FDA-Public Use
  Company Number: IT-ROCHE-663747

PATIENT
  Sex: Male
  Weight: 89 kg

DRUGS (8)
  1. BEVACIZUMAB [Suspect]
     Indication: NON-SMALL CELL LUNG CANCER
     Dosage: FREQUENCY REPORTED AS 21.PERMANENTLY DISCONTINUED
     Route: 042
     Dates: start: 20090916, end: 20091020
  2. PEMETREXED [Suspect]
     Indication: NON-SMALL CELL LUNG CANCER
     Dosage: FREQUENCY: 21. PERMANENTLY DISCONTINUED.
     Route: 042
     Dates: start: 20090916, end: 20091020
  3. CISPLATIN [Suspect]
     Indication: NON-SMALL CELL LUNG CANCER
     Dosage: FREQUENCY REPORTED AS 21.PERMANENTLY DISCONTINUED
     Route: 042
     Dates: start: 20090916, end: 20091020
  4. BLOPRESS [Concomitant]
     Dates: start: 20050101
  5. SOLOSA [Concomitant]
     Dates: start: 19990101
  6. ASPIRIN [Concomitant]
     Dates: start: 20050101
  7. STATIN [Concomitant]
     Dates: start: 19990101
  8. OMEPRAZOLE [Concomitant]
     Dosage: DOSE: 20 MG/DIE.

REACTIONS (3)
  - GASTROINTESTINAL TOXICITY [None]
  - NEUTROPENIA [None]
  - WEIGHT DECREASED [None]
